FAERS Safety Report 8553330 (Version 4)
Quarter: 2014Q1

REPORT INFORMATION
  Report Type: Report from Study
  Country: FR (occurrence: FR)
  Receive Date: 20120509
  Receipt Date: 20140127
  Transmission Date: 20141002
  Serious: Yes (Death)
  Sender: FDA-Public Use
  Company Number: FR-PFIZER INC-2012109681

PATIENT
  Age: 58 Year
  Sex: Female
  Weight: 48 kg

DRUGS (7)
  1. SUNITINIB MALATE [Suspect]
     Indication: METASTATIC RENAL CELL CARCINOMA
     Dosage: 50 MG, CYCLIC
     Route: 048
     Dates: start: 20110518, end: 20110908
  2. ZOPHREN [Concomitant]
     Indication: NAUSEA
     Dosage: 12 MG, 1X/DAY
     Route: 048
     Dates: start: 20111208
  3. ZOPHREN [Concomitant]
     Indication: VOMITING
  4. MORPHINE [Concomitant]
     Indication: PAIN
     Dosage: UNK
     Route: 042
  5. AEQUASYAL [Concomitant]
     Indication: DRY MOUTH
     Dosage: 0.4 PER 24H
     Route: 062
     Dates: start: 20111208
  6. AUGMENTIN [Concomitant]
     Indication: INFECTION
  7. TAVANIC [Concomitant]
     Indication: INFECTION

REACTIONS (1)
  - Procedural pain [Fatal]
